FAERS Safety Report 25039171 (Version 2)
Quarter: 2025Q1

REPORT INFORMATION
  Report Type: Report from Study
  Country: DE (occurrence: DE)
  Receive Date: 20250305
  Receipt Date: 20250305
  Transmission Date: 20250408
  Serious: Yes (Disabling)
  Sender: REGENERON
  Company Number: DE-BAYER-2024A171739

PATIENT
  Age: 75 Year
  Sex: Male

DRUGS (18)
  1. EYLEA [Suspect]
     Active Substance: AFLIBERCEPT
     Indication: Neovascular age-related macular degeneration
     Route: 031
     Dates: start: 20240507, end: 20240507
  2. EYLEA [Suspect]
     Active Substance: AFLIBERCEPT
     Indication: Diabetic retinal oedema
     Route: 031
     Dates: start: 20240604, end: 20240604
  3. EYLEA [Suspect]
     Active Substance: AFLIBERCEPT
     Route: 031
     Dates: start: 20250113, end: 20250113
  4. EYLEA [Suspect]
     Active Substance: AFLIBERCEPT
     Route: 031
     Dates: start: 20250211, end: 20250211
  5. CANDESARTAN CILEXETIL [Concomitant]
     Active Substance: CANDESARTAN CILEXETIL
     Indication: Product used for unknown indication
  6. HYDROCHLOROTHIAZID DEXCEL [Concomitant]
     Indication: Product used for unknown indication
  7. METOPROLOL FUMARATE [Concomitant]
     Active Substance: METOPROLOL FUMARATE
     Indication: Product used for unknown indication
  8. EFEROX [Concomitant]
     Active Substance: LEVOTHYROXINE SODIUM
     Indication: Product used for unknown indication
  9. DEBORA [Concomitant]
     Indication: Product used for unknown indication
     Dosage: UNK IE, QOD
  10. SERTRALINE HYDROCHLORIDE [Concomitant]
     Active Substance: SERTRALINE HYDROCHLORIDE
     Indication: Product used for unknown indication
  11. EZETIMIBE [Concomitant]
     Active Substance: EZETIMIBE
     Indication: Product used for unknown indication
  12. SIMVASTATIN [Concomitant]
     Active Substance: SIMVASTATIN
     Indication: Product used for unknown indication
  13. IBUPROFEN [Concomitant]
     Active Substance: IBUPROFEN
     Indication: Product used for unknown indication
  14. NITROLINGUAL [Concomitant]
     Active Substance: NITROGLYCERIN
     Indication: Product used for unknown indication
  15. EYLEA [Concomitant]
     Active Substance: AFLIBERCEPT
     Indication: Product used for unknown indication
     Dates: start: 20241015, end: 20241015
  16. EYLEA [Concomitant]
     Active Substance: AFLIBERCEPT
     Dates: start: 20241126, end: 20241126
  17. EYLEA [Concomitant]
     Active Substance: AFLIBERCEPT
     Dates: start: 20250107, end: 20250107
  18. EYLEA [Concomitant]
     Active Substance: AFLIBERCEPT
     Dates: start: 20250218, end: 20250218

REACTIONS (2)
  - Ocular ischaemic syndrome [Recovered/Resolved with Sequelae]
  - Ocular ischaemic syndrome [Recovered/Resolved with Sequelae]

NARRATIVE: CASE EVENT DATE: 20240618
